FAERS Safety Report 9189782 (Version 1)
Quarter: 2013Q1

REPORT INFORMATION
  Report Type: Spontaneous
  Country: BR (occurrence: BR)
  Receive Date: 20130326
  Receipt Date: 20130326
  Transmission Date: 20140127
  Serious: Yes (Death)
  Sender: FDA-Public Use
  Company Number: BR-PFIZER INC-2013097506

PATIENT
  Age: 78 Year
  Sex: Male

DRUGS (12)
  1. LYRICA [Suspect]
     Indication: PAIN
     Dosage: 75 MG, 1X/DAY
     Route: 048
     Dates: start: 20130118
  2. AAS [Concomitant]
     Indication: ANTICOAGULANT THERAPY
     Dosage: UNK
     Dates: start: 20121201, end: 20130201
  3. TRAMADOL HYDROCHLORIDE [Concomitant]
     Indication: PAIN
     Dosage: UNK
     Dates: start: 20121201, end: 20130217
  4. HYDROCHLOROTHIAZIDE [Concomitant]
     Indication: DIURETIC THERAPY
     Dosage: UNK
     Dates: start: 20121201, end: 20130101
  5. HIGROTON [Concomitant]
     Dosage: UNK
     Dates: start: 20130205, end: 20130217
  6. LOSARTAN [Concomitant]
     Indication: HYPERTENSION
     Dosage: UNK
     Dates: end: 20130210
  7. OMEPRAZOLE [Concomitant]
     Indication: GASTRIC DISORDER
     Dosage: UNK
     Dates: start: 20130201, end: 20130217
  8. PREDNISONE [Concomitant]
     Indication: BRONCHIAL DISORDER
     Dosage: UNSPECIFIED DOSE EVERY 5 DAYS
     Dates: start: 20121001, end: 20130217
  9. PROFENID [Concomitant]
     Indication: PAIN
     Dosage: UNK
     Dates: start: 20121201, end: 20130101
  10. PROFLOX [Concomitant]
     Dosage: UNK
     Dates: start: 20030101, end: 20130217
  11. SOMALGIN [Concomitant]
     Indication: ANTICOAGULANT THERAPY
     Dosage: UNK
     Dates: end: 20130217
  12. TRYPTANOL [Concomitant]
     Indication: RELAXATION THERAPY
     Dosage: UNK
     Dates: start: 20121201, end: 20130217

REACTIONS (2)
  - Lung neoplasm malignant [Fatal]
  - Respiratory failure [Fatal]
